FAERS Safety Report 13584259 (Version 4)
Quarter: 2017Q2

REPORT INFORMATION
  Report Type: Spontaneous
  Country: US (occurrence: US)
  Receive Date: 20170526
  Receipt Date: 20170616
  Transmission Date: 20170830
  Serious: No
  Sender: FDA-Public Use
  Company Number: US-PFIZER INC-2017228191

PATIENT
  Age: 79 Year
  Sex: Female

DRUGS (1)
  1. PREMIQUE LOW DOSE [Suspect]
     Active Substance: ESTROGENS, CONJUGATED\MEDROXYPROGESTERONE ACETATE
     Dosage: 2 DF, DAILY

REACTIONS (4)
  - Drug ineffective [Unknown]
  - Intentional product misuse [Unknown]
  - Asthenia [Unknown]
  - Fatigue [Unknown]
